FAERS Safety Report 8962729 (Version 1)
Quarter: 2012Q4

REPORT INFORMATION
  Report Type: 
  Country: CN (occurrence: CN)
  Receive Date: 20121214
  Receipt Date: 20121214
  Transmission Date: 20130627
  Serious: Yes (Hospitalization)
  Sender: FDA-Public Use
  Company Number: CN-JNJFOC-20121204068

PATIENT
  Age: 7 Year
  Sex: Female
  Weight: 30 kg

DRUGS (4)
  1. CHILDREN^S MOTRIN [Suspect]
     Route: 048
  2. CHILDREN^S MOTRIN [Suspect]
     Indication: PYREXIA
     Dosage: 8ml, four times daily
     Route: 048
     Dates: start: 20121201, end: 20121203
  3. CEPHALOSPORINS [Suspect]
     Indication: PYREXIA
     Route: 041
     Dates: start: 20121203, end: 20121203
  4. PENICILLIN [Suspect]
     Indication: PYREXIA
     Route: 041
     Dates: start: 20121204

REACTIONS (1)
  - Upper gastrointestinal haemorrhage [Recovered/Resolved]
